FAERS Safety Report 6636462-9 (Version None)
Quarter: 2010Q1

REPORT INFORMATION
  Report Type: 
  Country: None (occurrence: None)
  Receive Date: 20100310
  Receipt Date: 20100227
  Transmission Date: 20100710
  Serious: Yes (Other)
  Sender: FDA-Public Use
  Company Number: 1000012334

PATIENT
  Age: 45 Year
  Sex: Female
  Weight: 70 kg

DRUGS (3)
  1. CITALOPRAM (CITALOPRAM HYDROBROMIDE) (20 MILLIGRAM, TABLETS) [Suspect]
     Dosage: (400 MG, ONCE), ORAL
     Route: 048
     Dates: start: 20100227, end: 20100227
  2. REMERGIL (15 MILLIGRAM, TABLETS) [Suspect]
     Dosage: (210 MG, ONCE), ORAL
     Route: 048
     Dates: start: 20100227, end: 20100227
  3. ALCOHOL [Suspect]
     Dosage: UNKNOWN, AMOUNT (ONCE), ORAL
     Route: 048
     Dates: start: 20100227, end: 20100227

REACTIONS (5)
  - ALCOHOL POISONING [None]
  - MULTIPLE DRUG OVERDOSE INTENTIONAL [None]
  - SOMNOLENCE [None]
  - SUICIDE ATTEMPT [None]
  - TACHYCARDIA [None]
